FAERS Safety Report 15145078 (Version 8)
Quarter: 2018Q4

REPORT INFORMATION
  Report Type: Report from Study
  Country: US (occurrence: US)
  Receive Date: 20180713
  Receipt Date: 20181231
  Transmission Date: 20190204
  Serious: Yes (Hospitalization)
  Sender: FDA-Public Use
  Company Number: US-ACTELION-A-NJ2018-169001

PATIENT
  Age: 33 Year
  Sex: Female
  Weight: 46.26 kg

DRUGS (4)
  1. VELETRI [Suspect]
     Active Substance: EPOPROSTENOL
     Dosage: 78 NG/KG, PER MIN
     Route: 042
  2. VELETRI [Suspect]
     Active Substance: EPOPROSTENOL
     Dosage: 77 NG/KG, PER MIN
     Route: 042
  3. VELETRI [Suspect]
     Active Substance: EPOPROSTENOL
     Indication: PULMONARY ARTERIAL HYPERTENSION
     Dosage: 80 NG/KG, PER MIN
     Route: 042
  4. WARFARIN [Concomitant]
     Active Substance: WARFARIN

REACTIONS (14)
  - Thrombosis in device [Unknown]
  - Oxygen saturation decreased [Unknown]
  - Hypersensitivity [Unknown]
  - Catheter site pain [Unknown]
  - Back pain [Unknown]
  - Device alarm issue [Unknown]
  - Chest pain [Unknown]
  - Pneumonia [Unknown]
  - Pain in jaw [Unknown]
  - Flushing [Unknown]
  - Device malfunction [Unknown]
  - Device occlusion [Unknown]
  - Ovarian cystectomy [Unknown]
  - Catheter management [Unknown]

NARRATIVE: CASE EVENT DATE: 2018
